FAERS Safety Report 22159946 (Version 1)
Quarter: 2023Q1

REPORT INFORMATION
  Report Type: Spontaneous
  Country: GB (occurrence: GB)
  Receive Date: 20230331
  Receipt Date: 20230331
  Transmission Date: 20230418
  Serious: Yes (Hospitalization, Other)
  Sender: FDA-Public Use
  Company Number: GB-AstraZeneca-2022-45974

PATIENT
  Age: 29 Year
  Sex: Male

DRUGS (39)
  1. LEUCOVORIN [Suspect]
     Active Substance: LEUCOVORIN
     Indication: Gastric cancer
     Dosage: 164.0 MG/M2 AND 200 MG/M2 ON DAYS 1 AND 15 EVERY FOUR WEEKS
     Route: 042
     Dates: start: 20220506, end: 20220506
  2. LEUCOVORIN [Suspect]
     Active Substance: LEUCOVORIN
     Indication: Gastrooesophageal reflux disease
     Dosage: 164.0 MG/M2 AND 200 MG/M2 ON DAYS 1 AND 15 EVERY FOUR WEEKS
     Route: 042
     Dates: start: 20221028, end: 20221028
  3. LEUCOVORIN [Suspect]
     Active Substance: LEUCOVORIN
     Dosage: 164.0 MG/M2 AND 200 MG/M2 ON DAYS 1 AND 15 EVERY FOUR WEEKS
     Route: 042
     Dates: start: 20221111, end: 20221111
  4. LEUCOVORIN [Suspect]
     Active Substance: LEUCOVORIN
     Dosage: 164.0 MG/M2 AND 200 MG/M2 ON DAYS 1 AND 15 EVERY FOUR WEEKS
     Route: 042
     Dates: start: 20221209, end: 20221209
  5. LEUCOVORIN [Suspect]
     Active Substance: LEUCOVORIN
     Dosage: 164.0 MG/M2 AND 200 MG/M2 ON DAYS 1 AND 15 EVERY FOUR WEEKS
     Route: 042
     Dates: start: 20220610, end: 20220610
  6. LEUCOVORIN [Suspect]
     Active Substance: LEUCOVORIN
     Dosage: 164.0 MG/M2 AND 200 MG/M2 ON DAYS 1 AND 15 EVERY FOUR WEEKS
     Route: 042
     Dates: start: 20220527, end: 20220527
  7. LEUCOVORIN [Suspect]
     Active Substance: LEUCOVORIN
     Dosage: 164.0 MG/M2 AND 200 MG/M2 ON DAYS 1 AND 15 EVERY FOUR WEEKS
     Route: 042
     Dates: start: 20221125, end: 20221125
  8. OXALIPLATIN [Suspect]
     Active Substance: OXALIPLATIN
     Indication: Gastric cancer
     Dosage: 85 MG/M2 ON DAYS 1 AND 15 EVERY FOUR WEEKS
     Route: 042
     Dates: start: 20221028, end: 20221028
  9. OXALIPLATIN [Suspect]
     Active Substance: OXALIPLATIN
     Indication: Gastrooesophageal reflux disease
     Dosage: 85 MG/M2 ON DAYS 1 AND 15 EVERY FOUR WEEKS
     Route: 042
     Dates: start: 20220527, end: 20220527
  10. OXALIPLATIN [Suspect]
     Active Substance: OXALIPLATIN
     Dosage: 85 MG/M2 ON DAYS 1 AND 15 EVERY FOUR WEEKS
     Route: 042
     Dates: start: 20221125, end: 20221125
  11. OXALIPLATIN [Suspect]
     Active Substance: OXALIPLATIN
     Dosage: 85 MG/M2 ON DAYS 1 AND 15 EVERY FOUR WEEKS
     Route: 042
     Dates: start: 20220506, end: 20220506
  12. OXALIPLATIN [Suspect]
     Active Substance: OXALIPLATIN
     Dosage: 85 MG/M2 ON DAYS 1 AND 15 EVERY FOUR WEEKS
     Route: 042
     Dates: start: 20220610, end: 20220610
  13. OXALIPLATIN [Suspect]
     Active Substance: OXALIPLATIN
     Dosage: 85 MG/M2 ON DAYS 1 AND 15 EVERY FOUR WEEKS
     Route: 042
     Dates: start: 20221209, end: 20221209
  14. OXALIPLATIN [Suspect]
     Active Substance: OXALIPLATIN
     Dosage: 85 MG/M2 ON DAYS 1 AND 15 EVERY FOUR WEEKS
     Route: 042
     Dates: start: 20221111, end: 20221111
  15. FLUOROURACIL [Suspect]
     Active Substance: FLUOROURACIL
     Indication: Gastric cancer
     Dosage: 2600 MG/M2 ON DAYS 1 AND 15 EVERY FOUR WEEKS
     Route: 042
     Dates: start: 20221125, end: 20221126
  16. FLUOROURACIL [Suspect]
     Active Substance: FLUOROURACIL
     Indication: Gastrooesophageal reflux disease
     Dosage: 2600 MG/M2 ON DAYS 1 AND 15 EVERY FOUR WEEKS
     Route: 042
     Dates: start: 20221028, end: 20221029
  17. FLUOROURACIL [Suspect]
     Active Substance: FLUOROURACIL
     Dosage: 2600 MG/M2 ON DAYS 1 AND 15 EVERY FOUR WEEKS
     Route: 042
     Dates: start: 20220527, end: 20220528
  18. FLUOROURACIL [Suspect]
     Active Substance: FLUOROURACIL
     Dosage: 2600 MG/M2 ON DAYS 1 AND 15 EVERY FOUR WEEKS
     Route: 042
     Dates: start: 20221111, end: 20221112
  19. FLUOROURACIL [Suspect]
     Active Substance: FLUOROURACIL
     Dosage: 2600 MG/M2 ON DAYS 1 AND 15 EVERY FOUR WEEKS
     Route: 042
     Dates: start: 20220610, end: 20220611
  20. FLUOROURACIL [Suspect]
     Active Substance: FLUOROURACIL
     Dosage: 2600 MG/M2 ON DAYS 1 AND 15 EVERY FOUR WEEKS
     Route: 042
     Dates: start: 20221209, end: 20221210
  21. FLUOROURACIL [Suspect]
     Active Substance: FLUOROURACIL
     Dosage: 2600 MG/M2 ON DAYS 1 AND 15 EVERY FOUR WEEKS
     Route: 042
     Dates: start: 20220506, end: 20220507
  22. DOCETAXEL [Suspect]
     Active Substance: DOCETAXEL
     Indication: Gastric cancer
     Dosage: 50 MG/M2 ON DAYS 1 AND 15 EVERY FOUR WEEKS
     Route: 042
     Dates: start: 20221125, end: 20221125
  23. DOCETAXEL [Suspect]
     Active Substance: DOCETAXEL
     Indication: Gastrooesophageal reflux disease
     Dosage: 50 MG/M2 ON DAYS 1 AND 15 EVERY FOUR WEEKS
     Route: 042
     Dates: start: 20220610, end: 20220610
  24. DOCETAXEL [Suspect]
     Active Substance: DOCETAXEL
     Dosage: 50 MG/M2 ON DAYS 1 AND 15 EVERY FOUR WEEKS
     Route: 042
     Dates: start: 20221028, end: 20221028
  25. DOCETAXEL [Suspect]
     Active Substance: DOCETAXEL
     Dosage: 50 MG/M2 ON DAYS 1 AND 15 EVERY FOUR WEEKS
     Route: 042
     Dates: start: 20221111, end: 20221111
  26. DOCETAXEL [Suspect]
     Active Substance: DOCETAXEL
     Dosage: 50 MG/M2 ON DAYS 1 AND 15 EVERY FOUR WEEKS
     Route: 042
     Dates: start: 20220506, end: 20220506
  27. DOCETAXEL [Suspect]
     Active Substance: DOCETAXEL
     Dosage: 50 MG/M2 ON DAYS 1 AND 15 EVERY FOUR WEEKS
     Route: 042
     Dates: start: 20220527, end: 20220527
  28. DOCETAXEL [Suspect]
     Active Substance: DOCETAXEL
     Dosage: 50 MG/M2 ON DAYS 1 AND 15 EVERY FOUR WEEKS
     Route: 042
     Dates: start: 20221209, end: 20221209
  29. DURVALUMAB [Suspect]
     Active Substance: DURVALUMAB
     Indication: Gastric cancer
     Route: 042
     Dates: start: 20220610, end: 20220610
  30. DURVALUMAB [Suspect]
     Active Substance: DURVALUMAB
     Indication: Gastrooesophageal reflux disease
     Route: 042
     Dates: start: 20221028, end: 20221028
  31. DURVALUMAB [Suspect]
     Active Substance: DURVALUMAB
     Route: 042
     Dates: start: 20221125, end: 20221125
  32. DURVALUMAB [Suspect]
     Active Substance: DURVALUMAB
     Route: 042
     Dates: start: 20220506, end: 20220506
  33. DEXAMETHASONE [Concomitant]
     Active Substance: DEXAMETHASONE
     Indication: Chemotherapy side effect prophylaxis
     Route: 048
     Dates: start: 20220506, end: 20220514
  34. DEXAMETHASONE [Concomitant]
     Active Substance: DEXAMETHASONE
     Route: 042
     Dates: start: 20220506, end: 20220506
  35. DIHYDROCODEINE [Concomitant]
     Active Substance: DIHYDROCODEINE
     Indication: Back pain
     Route: 048
     Dates: start: 20220406, end: 20220419
  36. OMEPRAZOLE [Concomitant]
     Active Substance: OMEPRAZOLE
     Indication: Gastrooesophageal reflux disease
     Route: 048
     Dates: start: 20220330, end: 20220509
  37. ONDANSETRON [Concomitant]
     Active Substance: ONDANSETRON
     Indication: Chemotherapy side effect prophylaxis
     Route: 048
     Dates: start: 20220506, end: 20220506
  38. ONDANSETRON [Concomitant]
     Active Substance: ONDANSETRON
     Indication: Chemotherapy side effect prophylaxis
     Route: 048
     Dates: start: 20220506, end: 20220513
  39. ACETAMINOPHEN [Concomitant]
     Active Substance: ACETAMINOPHEN
     Indication: Pyrexia
     Route: 048
     Dates: start: 20220406, end: 20220504

REACTIONS (4)
  - Chills [Recovered/Resolved]
  - Staphylococcal infection [Recovered/Resolved]
  - Pyrexia [Recovered/Resolved]
  - Hyperhidrosis [Recovered/Resolved]

NARRATIVE: CASE EVENT DATE: 20220509
